FAERS Safety Report 6149892-9 (Version None)
Quarter: 2009Q2

REPORT INFORMATION
  Report Type: 
  Country: None (occurrence: None)
  Receive Date: 20090407
  Receipt Date: 20090331
  Transmission Date: 20091009
  Serious: Yes (Other)
  Sender: FDA-Public Use
  Company Number: CHPA2009US08334

PATIENT
  Age: 58 Year
  Sex: Female
  Weight: 70.3 kg

DRUGS (1)
  1. NICOTINE [Suspect]
     Indication: SMOKING CESSATION THERAPY
     Dosage: 21 MG, QD, TRANSDERMAL
     Route: 062
     Dates: start: 20080101, end: 20080101

REACTIONS (2)
  - APPENDICITIS [None]
  - RASH GENERALISED [None]
